FAERS Safety Report 4816434-7 (Version None)
Quarter: 2005Q4

REPORT INFORMATION
  Report Type: 
  Country: None (occurrence: None)
  Receive Date: 20051028
  Receipt Date: 20051021
  Transmission Date: 20060501
  Serious: Yes (Disabling)
  Sender: FDA-Public Use
  Company Number: FRWYE079921OCT05

PATIENT
  Age: 72 Year
  Sex: Male

DRUGS (12)
  1. EFFEXOR XR [Suspect]
     Indication: DEPRESSION
     Dosage: SEE IMAGE
     Route: 048
     Dates: start: 20051011, end: 20051017
  2. EFFEXOR XR [Suspect]
     Indication: DEPRESSION
     Dosage: SEE IMAGE
     Route: 048
     Dates: start: 20051018, end: 20051019
  3. NEURONTIN [Concomitant]
  4. JOSIR          (TAMSULOSIN HYDROCHLORIDE) [Concomitant]
  5. LIORESAL [Concomitant]
  6. CLONAZEPAM [Concomitant]
  7. METHOTREXATE [Concomitant]
  8. GLUCOPHAGE [Concomitant]
  9. FORADIL [Concomitant]
  10. SINGULAIR [Concomitant]
  11. ACETAMINOPHEN W/ PROPOXYPHENE HCL [Concomitant]
  12. PANTOPRAZOLE SODIUM [Concomitant]

REACTIONS (7)
  - ABDOMINAL DISTENSION [None]
  - CONDITION AGGRAVATED [None]
  - DIFFICULTY IN WALKING [None]
  - FORMICATION [None]
  - HALLUCINATION, VISUAL [None]
  - HEADACHE [None]
  - MUSCULAR WEAKNESS [None]
